FAERS Safety Report 24246304 (Version 1)
Quarter: 2024Q3

REPORT INFORMATION
  Report Type: Spontaneous
  Country: IL (occurrence: IL)
  Receive Date: 20240825
  Receipt Date: 20240825
  Transmission Date: 20241016
  Serious: Yes (Hospitalization)
  Sender: MERCK KGAA
  Company Number: IL-Merck Healthcare KGaA-2024043570

PATIENT
  Age: 65 Year

DRUGS (1)
  1. EUTHYROX [Suspect]
     Active Substance: LEVOTHYROXINE SODIUM
     Indication: Product used for unknown indication

REACTIONS (2)
  - Eye swelling [Unknown]
  - Rash pruritic [Unknown]
